FAERS Safety Report 22181626 (Version 1)
Quarter: 2023Q2

REPORT INFORMATION
  Report Type: Report from Study
  Country: US (occurrence: US)
  Receive Date: 20230406
  Receipt Date: 20230406
  Transmission Date: 20230722
  Serious: Yes (Other)
  Sender: FDA-Public Use
  Company Number: US-TAKEDA-2023TUS034500

PATIENT
  Sex: Female

DRUGS (1)
  1. HUMAN IMMUNOGLOBULIN G [Suspect]
     Active Substance: HUMAN IMMUNOGLOBULIN G
     Indication: Product used for unknown indication
     Dosage: UNK
     Route: 065

REACTIONS (11)
  - Pneumonia [Unknown]
  - Multiple allergies [Unknown]
  - Upper-airway cough syndrome [Unknown]
  - Eye pruritus [Unknown]
  - Bronchitis [Unknown]
  - Ear infection [Unknown]
  - Wheezing [Unknown]
  - Injection site pruritus [Unknown]
  - Injection site erythema [Unknown]
  - Cough [Unknown]
  - Dyspnoea [Unknown]
